FAERS Safety Report 4507174-2 (Version None)
Quarter: 2004Q4

REPORT INFORMATION
  Report Type: 
  Country: None (occurrence: None)
  Receive Date: 20041122
  Receipt Date: 20041116
  Transmission Date: 20050328
  Serious: Yes (Life-Threatening, Hospitalization, Disabling)
  Sender: FDA-Public Use
  Company Number: US-MERCK-0411USA02765

PATIENT
  Age: 53 Year
  Sex: Male

DRUGS (5)
  1. VIOXX [Suspect]
     Indication: PAIN IN EXTREMITY
     Route: 048
     Dates: start: 19990101, end: 20041001
  2. PROZAC [Concomitant]
     Route: 065
  3. AVANDIA [Concomitant]
     Route: 065
  4. ZOCOR [Concomitant]
     Route: 065
  5. GLUCOPHAGE [Concomitant]
     Route: 065

REACTIONS (1)
  - MYOCARDIAL INFARCTION [None]
